FAERS Safety Report 8471038-2 (Version None)
Quarter: 2012Q2

REPORT INFORMATION
  Report Type: 
  Country: None (occurrence: None)
  Receive Date: 20120621
  Receipt Date: 20120606
  Transmission Date: 20120825
  Serious: Yes (Other)
  Sender: FDA-Public Use
  Company Number: 2012HGS-003743

PATIENT

DRUGS (2)
  1. BENLYSTA [Suspect]
     Indication: SYSTEMIC LUPUS ERYTHEMATOSUS
     Dosage: 10 MG/KG, 1 IN 28 D, INTRAVENOUS DRIP
     Route: 041
     Dates: start: 20120412
  2. NOVOPHENIRAM (CHLORPHENAMINE MALEATE) (CHLORPHENAMINE MALEATE) [Concomitant]

REACTIONS (6)
  - THROAT IRRITATION [None]
  - CHILLS [None]
  - PAIN [None]
  - FEELING HOT [None]
  - INFUSION RELATED REACTION [None]
  - SYSTEMIC LUPUS ERYTHEMATOSUS [None]
